FAERS Safety Report 10137614 (Version 1)
Quarter: 2014Q2

REPORT INFORMATION
  Report Type: Report from Study
  Country: DE (occurrence: DE)
  Receive Date: 20140429
  Receipt Date: 20140429
  Transmission Date: 20141212
  Serious: Yes (Hospitalization)
  Sender: FDA-Public Use
  Company Number: DE-ABBVIE-14P-062-1231229-00

PATIENT
  Age: 30 Year
  Sex: Male

DRUGS (3)
  1. HUMIRA [Suspect]
     Indication: CROHN^S DISEASE
     Route: 058
     Dates: start: 20100218, end: 20131030
  2. REMICADE [Suspect]
     Indication: PRODUCT USED FOR UNKNOWN INDICATION
     Dates: end: 2014
  3. CHEMOTHERAPEUTICS [Suspect]
     Indication: GASTRIC CANCER

REACTIONS (3)
  - Generalised oedema [Unknown]
  - Gastric cancer [Not Recovered/Not Resolved]
  - Feeling abnormal [Unknown]
